FAERS Safety Report 4749421-8 (Version None)
Quarter: 2005Q3

REPORT INFORMATION
  Report Type: 
  Country: None (occurrence: None)
  Receive Date: 20050819
  Receipt Date: 20050512
  Transmission Date: 20060218
  Serious: Yes (Hospitalization, Disabling)
  Sender: FDA-Public Use
  Company Number: US-MERCK-0505USA01676

PATIENT
  Age: 38 Year
  Sex: Female
  Weight: 82 kg

DRUGS (4)
  1. VIOXX [Suspect]
     Indication: TENDONITIS
     Route: 048
     Dates: start: 20020801, end: 20021001
  2. VIOXX [Suspect]
     Route: 048
     Dates: start: 20020805, end: 20020801
  3. PROZAC [Concomitant]
     Indication: FEAR
     Route: 065
  4. NAPROSYN [Concomitant]
     Indication: TENDONITIS
     Route: 065
     Dates: start: 19960101, end: 20020101

REACTIONS (3)
  - ANIMAL BITE [None]
  - MYOCARDIAL INFARCTION [None]
  - PHARYNGITIS STREPTOCOCCAL [None]
